FAERS Safety Report 5979364-3 (Version None)
Quarter: 2008Q4

REPORT INFORMATION
  Report Type: 
  Country: None (occurrence: None)
  Receive Date: 20081204
  Receipt Date: 20081127
  Transmission Date: 20090506
  Serious: Yes (Hospitalization)
  Sender: FDA-Public Use
  Company Number: FR-BAXTER-2008BH013083

PATIENT
  Age: 43 Year
  Sex: Female

DRUGS (13)
  1. ENDOXAN BAXTER [Suspect]
     Indication: MANTLE CELL LYMPHOMA
     Route: 042
     Dates: start: 20080820, end: 20080822
  2. METHOTREXATE [Suspect]
     Indication: MANTLE CELL LYMPHOMA
     Route: 042
     Dates: start: 20080819, end: 20080819
  3. VINCRISTINE SULFATE [Suspect]
     Indication: MANTLE CELL LYMPHOMA
     Route: 042
     Dates: start: 20080819, end: 20080825
  4. DOXORUBICIN HCL [Suspect]
     Indication: MANTLE CELL LYMPHOMA
     Route: 042
     Dates: start: 20080820, end: 20080820
  5. TRAMADOL HCL [Concomitant]
  6. MOPRAL [Concomitant]
  7. ALLOPURINOL [Concomitant]
  8. VALACYCLOVIR HCL [Concomitant]
  9. XANAX [Concomitant]
  10. LANSOYL [Concomitant]
  11. IMOVANE [Concomitant]
  12. NEULASTA [Concomitant]
  13. EPOETIN BETA [Concomitant]
     Dates: start: 20080828, end: 20080828

REACTIONS (6)
  - ARTHRALGIA [None]
  - DYSPHAGIA [None]
  - EAR PAIN [None]
  - FEBRILE BONE MARROW APLASIA [None]
  - LUNG DISORDER [None]
  - ODYNOPHAGIA [None]
